FAERS Safety Report 6698186-1 (Version None)
Quarter: 2010Q2

REPORT INFORMATION
  Report Type: 
  Country: None (occurrence: None)
  Receive Date: 20100427
  Receipt Date: 20100415
  Transmission Date: 20101027
  Serious: Yes (Other)
  Sender: FDA-Public Use
  Company Number: US-SANOFI-AVENTIS-2010SA016317

PATIENT
  Age: 58 Year
  Sex: Female
  Weight: 72 kg

DRUGS (22)
  1. PLAVIX [Suspect]
     Route: 048
     Dates: end: 20090708
  2. PLAVIX [Suspect]
     Route: 048
     Dates: end: 20090708
  3. PLAVIX [Suspect]
     Route: 048
     Dates: end: 20090708
  4. PLAVIX [Suspect]
     Route: 048
     Dates: start: 20090803, end: 20090815
  5. PLAVIX [Suspect]
     Route: 048
     Dates: start: 20090803, end: 20090815
  6. PLAVIX [Suspect]
     Route: 048
     Dates: start: 20090803, end: 20090815
  7. PLAVIX [Suspect]
     Route: 048
     Dates: start: 20091208, end: 20100110
  8. PLAVIX [Suspect]
     Route: 048
     Dates: start: 20091208, end: 20100110
  9. PLAVIX [Suspect]
     Route: 048
     Dates: start: 20091208, end: 20100110
  10. LEVOTHYROXINE [Concomitant]
     Indication: HYPOTHYROIDISM
     Dates: start: 19800101
  11. METFORMIN [Concomitant]
     Dates: start: 20030101
  12. ATENOLOL [Concomitant]
     Dates: start: 20070101
  13. AVAPRO [Concomitant]
     Indication: HYPERTENSION
     Dates: start: 20080101
  14. SINGULAIR [Concomitant]
     Indication: BRONCHITIS
     Dates: start: 20080101
  15. SIMVASTATIN [Concomitant]
     Dates: start: 20090617
  16. TRAZODONE HCL [Concomitant]
     Indication: SLEEP DISORDER
     Dosage: 1-2 TABLETS
     Dates: start: 20000101, end: 20100408
  17. WELLBUTRIN SR [Concomitant]
     Indication: DEPRESSION
     Dates: start: 20070101
  18. CYMBALTA [Concomitant]
     Indication: PAIN
     Dates: start: 20060101
  19. CYMBALTA [Concomitant]
     Indication: DEPRESSION
     Dates: start: 20060101
  20. VYTORIN [Concomitant]
     Dates: end: 20090617
  21. HERBAL PREPARATION [Concomitant]
     Dates: start: 20090627
  22. ALOE VERA [Concomitant]
     Dates: start: 20090817

REACTIONS (11)
  - ANAEMIA [None]
  - ASTHENIA [None]
  - COLITIS COLLAGENOUS [None]
  - DIARRHOEA [None]
  - GASTRITIS [None]
  - HAEMATOCRIT DECREASED [None]
  - HAEMOGLOBIN DECREASED [None]
  - MUSCLE SPASMS [None]
  - THROMBOPHLEBITIS SUPERFICIAL [None]
  - VOMITING [None]
  - WEIGHT DECREASED [None]
